FAERS Safety Report 4431811-4 (Version None)
Quarter: 2004Q3

REPORT INFORMATION
  Report Type: 
  Country: None (occurrence: None)
  Receive Date: 20040825
  Receipt Date: 20040729
  Transmission Date: 20050211
  Serious: Yes (Death, Hospitalization, Other)
  Sender: FDA-Public Use
  Company Number: DE-JNJFOC-20040800338

PATIENT
  Sex: Female

DRUGS (14)
  1. LEVOFLOXACIN [Suspect]
     Route: 042
     Dates: start: 20040101, end: 20040107
  2. ALBUTEROL [Concomitant]
     Route: 055
     Dates: start: 20031231, end: 20040101
  3. ATROVENT [Concomitant]
     Route: 055
     Dates: start: 20031231, end: 20040120
  4. XOPENEX [Concomitant]
     Route: 055
     Dates: start: 20040101, end: 20040120
  5. GUAIFENSIN [Concomitant]
     Route: 049
  6. GUAIFENSIN [Concomitant]
     Indication: COUGH
     Route: 049
  7. SOLU-MEDROL [Concomitant]
     Route: 042
     Dates: start: 20040101, end: 20040107
  8. SOLU-MEDROL [Concomitant]
     Indication: PNEUMONIA
     Route: 042
     Dates: start: 20040101, end: 20040107
  9. SOLU-MEDROL [Concomitant]
     Indication: BRONCHOSPASM
     Route: 042
     Dates: start: 20040101, end: 20040107
  10. LOVENOX [Concomitant]
     Route: 058
     Dates: start: 20031231, end: 20040120
  11. ATENOLOL [Concomitant]
     Indication: HYPERTENSION
     Route: 049
     Dates: start: 20031231, end: 20040120
  12. PROZAC [Concomitant]
     Indication: DEPRESSION
     Route: 049
     Dates: start: 20031231, end: 20040120
  13. VASOTEC [Concomitant]
     Route: 049
     Dates: start: 20040104, end: 20040120
  14. VASOTEC [Concomitant]
     Indication: HYPERTENSION
     Route: 049
     Dates: start: 20040104, end: 20040120

REACTIONS (5)
  - ACUTE RESPIRATORY DISTRESS SYNDROME [None]
  - DISEASE PROGRESSION [None]
  - PNEUMONIA [None]
  - RESPIRATORY FAILURE [None]
  - SEPSIS [None]
